FAERS Safety Report 17164392 (Version 1)
Quarter: 2019Q4

REPORT INFORMATION
  Report Type: Spontaneous
  Country: JP (occurrence: JP)
  Receive Date: 20191217
  Receipt Date: 20191217
  Transmission Date: 20200122
  Serious: Yes (Other)
  Sender: FDA-Public Use
  Company Number: JP-PFIZER INC-2019541732

PATIENT
  Age: 4 Decade
  Sex: Male

DRUGS (2)
  1. EFFEXOR [Suspect]
     Active Substance: VENLAFAXINE HYDROCHLORIDE
     Dosage: 150 MG, UNK
  2. SULPIRIDE [Concomitant]
     Active Substance: SULPIRIDE
     Dosage: UNK

REACTIONS (1)
  - Hepatic function abnormal [Unknown]
